FAERS Safety Report 7216403-6 (Version None)
Quarter: 2011Q1

REPORT INFORMATION
  Report Type: 
  Country: None (occurrence: None)
  Receive Date: 20110105
  Receipt Date: 20110105
  Transmission Date: 20110831
  Serious: Yes (Hospitalization)
  Sender: FDA-Public Use
  Company Number: None

PATIENT
  Age: 48 Year
  Sex: Male
  Weight: 67.2 kg

DRUGS (1)
  1. TRAZODONE HCL [Suspect]
     Indication: SLEEP DISORDER
     Dosage: 100 MG AT BEDTIME PO
     Route: 048
     Dates: start: 20101123, end: 20101124

REACTIONS (2)
  - PRIAPISM [None]
  - SUICIDE ATTEMPT [None]
